FAERS Safety Report 20529835 (Version 1)
Quarter: 2022Q1

REPORT INFORMATION
  Report Type: Spontaneous
  Country: US (occurrence: US)
  Receive Date: 20220301
  Receipt Date: 20220301
  Transmission Date: 20220424
  Serious: Yes (Death, Life-Threatening, Other)
  Sender: FDA-Public Use
  Company Number: US-AMGEN-USASP2022032552

PATIENT

DRUGS (1)
  1. BLINATUMOMAB [Suspect]
     Active Substance: BLINATUMOMAB
     Indication: B precursor type acute leukaemia
     Route: 065

REACTIONS (49)
  - Respiratory failure [Fatal]
  - Death [Fatal]
  - Acute lymphocytic leukaemia recurrent [Fatal]
  - Arthritis infective [Fatal]
  - Dyspnoea [Unknown]
  - Lymphocyte count decreased [Unknown]
  - Neutrophil count decreased [Unknown]
  - White blood cell count decreased [Unknown]
  - Platelet count decreased [Unknown]
  - Pneumonia [Unknown]
  - Pyrexia [Unknown]
  - Hyperglycaemia [Unknown]
  - Anaemia [Unknown]
  - Hypertension [Unknown]
  - Leukaemic infiltration extramedullary [Unknown]
  - Hypotension [Unknown]
  - Pneumonitis [Unknown]
  - Transformation to acute myeloid leukaemia [Unknown]
  - Infusion related reaction [Unknown]
  - Acute kidney injury [Unknown]
  - Infection [Unknown]
  - Thrombotic thrombocytopenic purpura [Unknown]
  - Neurotoxicity [Unknown]
  - Hypoxia [Unknown]
  - Dysarthria [Unknown]
  - Confusional state [Unknown]
  - Sepsis [Unknown]
  - Hypophosphataemia [Unknown]
  - Fatigue [Unknown]
  - Cytokine release syndrome [Unknown]
  - Alanine aminotransferase abnormal [Unknown]
  - Hypocalcaemia [Unknown]
  - Diarrhoea [Unknown]
  - Febrile neutropenia [Unknown]
  - Atrial fibrillation [Unknown]
  - Cardiac failure [Unknown]
  - Atrial flutter [Unknown]
  - Nausea [Unknown]
  - Chills [Unknown]
  - Aspartate aminotransferase abnormal [Unknown]
  - Blood bilirubin abnormal [Unknown]
  - Blood creatinine increased [Unknown]
  - Decreased appetite [Unknown]
  - Hypoalbuminaemia [Unknown]
  - Bone pain [Unknown]
  - Myalgia [Unknown]
  - Muscular weakness [Unknown]
  - Lethargy [Unknown]
  - Tremor [Unknown]
